FAERS Safety Report 10217077 (Version 1)
Quarter: 2014Q2

REPORT INFORMATION
  Report Type: Spontaneous
  Country: ES (occurrence: ES)
  Receive Date: 20140604
  Receipt Date: 20140604
  Transmission Date: 20141212
  Serious: Yes (Hospitalization)
  Sender: FDA-Public Use
  Company Number: ES-MYLANLABS-2014S1011996

PATIENT
  Age: 80 Year
  Sex: Male

DRUGS (6)
  1. INDAPAMIDE [Suspect]
     Indication: HYPERTENSION
     Dosage: 1CP
     Route: 048
     Dates: start: 20130507, end: 20130606
  2. OMEPRAZOLE [Concomitant]
     Indication: PROPHYLAXIS AGAINST GASTROINTESTINAL ULCER
     Dosage: 1CP
     Route: 048
     Dates: start: 20120309
  3. ATORVASTATINA [Concomitant]
     Indication: DYSLIPIDAEMIA
     Dosage: 0-0-1
     Route: 048
     Dates: start: 20110329
  4. ADIRO [Concomitant]
     Indication: PROPHYLAXIS
     Dosage: 1CP
     Route: 048
  5. PARACETAMOL [Concomitant]
     Indication: PAIN
     Dosage: 1-1-1
     Route: 048
     Dates: start: 2006
  6. PERINDOPRIL [Concomitant]
     Indication: HYPERTENSION
     Dosage: 0-1-0
     Route: 048
     Dates: start: 20120913

REACTIONS (2)
  - Hyponatraemia [Recovered/Resolved]
  - Fall [Recovering/Resolving]
